FAERS Safety Report 24584005 (Version 1)
Quarter: 2024Q4

REPORT INFORMATION
  Report Type: Spontaneous
  Country: US (occurrence: None)
  Receive Date: 20241105
  Receipt Date: 20241105
  Transmission Date: 20250115
  Serious: No
  Sender: Public
  Company Number: None

PATIENT
  Age: 55 Year
  Sex: Female

DRUGS (2)
  1. RINVOQ [Suspect]
     Active Substance: UPADACITINIB
     Indication: Dermatitis atopic
     Dosage: FREQUENCY : DAILY;?
     Route: 048
     Dates: start: 202402
  2. VTAMA 1% CREAM 60 GM [Concomitant]
     Dosage: FREQUENCY : DAILY;?
     Route: 061
     Dates: start: 202308

REACTIONS (2)
  - Pneumonia [None]
  - COVID-19 [None]
